FAERS Safety Report 4628207-9 (Version None)
Quarter: 2005Q2

REPORT INFORMATION
  Report Type: 
  Country: None (occurrence: None)
  Receive Date: 20050401
  Receipt Date: 20050321
  Transmission Date: 20051028
  Serious: Yes (Other)
  Sender: FDA-Public Use
  Company Number: 2005048132

PATIENT
  Age: 36 Year
  Sex: Female
  Weight: 40.8237 kg

DRUGS (15)
  1. DEPO-PROVERA [Suspect]
     Indication: ENDOMETRIOSIS
     Dosage: 150 MG (150 MG, CYCLIC INTERVAL : 90 DAYS ) INTRAMUSCULAR
     Route: 030
     Dates: start: 19850101, end: 19990101
  2. DILANTIN [Suspect]
     Indication: TRIGEMINAL NEURALGIA
     Dosage: 90 MG (DAILY INTERVAL:  EVERY DAY) ORAL
     Route: 048
     Dates: start: 19890101, end: 19890101
  3. ESTRING [Suspect]
     Indication: VULVOVAGINAL DRYNESS
     Dosage: VAGINAL
     Route: 067
     Dates: start: 20000101, end: 20000101
  4. PROVERA [Suspect]
     Indication: VAGINAL HAEMORRHAGE
     Dosage: 1.25 MG, (2.5 MG, DAILY INTERVAL:  EVERY DAY), ORAL
     Route: 048
     Dates: start: 20050305, end: 20050319
  5. ANOVLAR (ETHINYLESTRADIOL, NORETHISTERONE ACETATE) [Suspect]
     Indication: VULVOVAGINAL DRYNESS
     Dosage: ORAL
     Route: 048
     Dates: start: 20000801, end: 20000801
  6. CONJUGATED ESTROGENS [Suspect]
     Indication: VULVOVAGINAL DRYNESS
     Dosage: VAGINAL
     Route: 067
     Dates: start: 19990101
  7. CLIMARA [Concomitant]
  8. ESTRACE [Concomitant]
  9. TEGRETOL [Concomitant]
  10. NEURONTIN [Concomitant]
  11. TRILEPTAL [Concomitant]
  12. KLONOPIN [Concomitant]
  13. FIORICET [Concomitant]
  14. VAGIFEM [Concomitant]
  15. BACLOFEN [Concomitant]

REACTIONS (16)
  - ACNE [None]
  - DISORIENTATION [None]
  - FAMILY STRESS [None]
  - IRRITABLE BOWEL SYNDROME [None]
  - IUCD COMPLICATION [None]
  - LIP DISORDER [None]
  - NERVE INJURY [None]
  - NIGHT SWEATS [None]
  - POST PROCEDURAL COMPLICATION [None]
  - PREMATURE MENOPAUSE [None]
  - URTICARIA [None]
  - VAGINAL HAEMORRHAGE [None]
  - VAGINAL PAIN [None]
  - VERTIGO [None]
  - VULVOVAGINAL DRYNESS [None]
  - WEIGHT FLUCTUATION [None]
